FAERS Safety Report 24531088 (Version 2)
Quarter: 2024Q4

REPORT INFORMATION
  Report Type: Spontaneous
  Country: US (occurrence: US)
  Receive Date: 20241022
  Receipt Date: 20241022
  Transmission Date: 20250115
  Serious: Yes (Other)
  Sender: ROCHE
  Company Number: US-ROCHE-10000105819

PATIENT
  Age: 74 Year
  Sex: Male

DRUGS (4)
  1. VABYSMO [Suspect]
     Active Substance: FARICIMAB-SVOA
     Indication: Neovascular age-related macular degeneration
     Route: 065
  2. PREDNISONE [Concomitant]
     Active Substance: PREDNISONE
     Route: 048
  3. LUCENTIS [Concomitant]
     Active Substance: RANIBIZUMAB
     Dates: start: 2018
  4. EYLEA [Concomitant]
     Active Substance: AFLIBERCEPT
     Dates: start: 2018

REACTIONS (5)
  - Eye pain [Unknown]
  - Blindness [Unknown]
  - Retinal haemorrhage [Unknown]
  - Retinal vein occlusion [Unknown]
  - Retinal vasculitis [Unknown]

NARRATIVE: CASE EVENT DATE: 20240906
